FAERS Safety Report 9416960 (Version 3)
Quarter: 2013Q4

REPORT INFORMATION
  Report Type: Spontaneous
  Country: JP (occurrence: JP)
  Receive Date: 20130724
  Receipt Date: 20131004
  Transmission Date: 20140711
  Serious: Yes (Life-Threatening, Hospitalization)
  Sender: FDA-Public Use
  Company Number: JP-SANOFI-AVENTIS-2013SA071064

PATIENT
  Age: 69 Year
  Sex: Male

DRUGS (7)
  1. PLAVIX [Suspect]
     Indication: MYOCARDIAL INFARCTION
     Route: 048
     Dates: start: 20110519, end: 20120408
  2. ASPIRIN [Suspect]
     Indication: MYOCARDIAL INFARCTION
     Route: 065
  3. BAYASPIRIN [Concomitant]
     Indication: CARDIAC FAILURE CONGESTIVE
     Route: 048
     Dates: start: 200911
  4. CALTAN [Concomitant]
     Indication: RENAL FAILURE
     Route: 048
  5. ALFAROL [Concomitant]
     Indication: RENAL FAILURE
     Route: 048
  6. LIPITOR [Concomitant]
     Indication: HYPERLIPIDAEMIA
     Route: 048
  7. ALLEGRA [Concomitant]
     Route: 048

REACTIONS (7)
  - Haemothorax [Recovering/Resolving]
  - Pallor [Recovering/Resolving]
  - Cold sweat [Recovering/Resolving]
  - Haemoglobin decreased [Recovering/Resolving]
  - Pneumothorax [Recovering/Resolving]
  - Condition aggravated [Recovering/Resolving]
  - Dyspnoea [Recovering/Resolving]
